FAERS Safety Report 9053776 (Version 1)
Quarter: 2013Q1

REPORT INFORMATION
  Report Type: Spontaneous
  Country: US (occurrence: None)
  Receive Date: 20130201
  Receipt Date: 20130201
  Transmission Date: 20140127
  Serious: Yes (Disabling)
  Sender: FDA-Public Use
  Company Number: None

PATIENT
  Age: 67 Year
  Sex: Female
  Weight: 82.1 kg

DRUGS (3)
  1. LYRICA [Suspect]
     Indication: FIBROMYALGIA
     Route: 048
  2. LYRICA [Suspect]
     Indication: FIBROMYALGIA
     Dosage: 150MG ONCE OR TWICE A DAY PO
     Route: 048
  3. LYRICA [Suspect]
     Indication: BACK PAIN
     Dosage: 150MG ONCE OR TWICE A DAY PO
     Route: 048

REACTIONS (1)
  - Tremor [None]
